FAERS Safety Report 22742204 (Version 5)
Quarter: 2024Q1

REPORT INFORMATION
  Report Type: Spontaneous
  Country: JP (occurrence: JP)
  Receive Date: 20230724
  Receipt Date: 20240125
  Transmission Date: 20240410
  Serious: Yes (Hospitalization, Disabling, Other)
  Sender: FDA-Public Use
  Company Number: JP-GLAXOSMITHKLINE-JP2023JPN099711

PATIENT

DRUGS (12)
  1. DAPRODUSTAT [Suspect]
     Active Substance: DAPRODUSTAT
     Indication: Nephrogenic anaemia
     Dosage: 2 MG
     Route: 048
  2. DAPRODUSTAT [Suspect]
     Active Substance: DAPRODUSTAT
     Dosage: 4 MG, 1D
     Route: 048
     Dates: start: 20230608, end: 20230718
  3. DAPRODUSTAT [Suspect]
     Active Substance: DAPRODUSTAT
     Dosage: 2 MG, QD
     Route: 048
     Dates: start: 20230719
  4. AZOSEMIDE [Suspect]
     Active Substance: AZOSEMIDE
     Indication: Cardiac failure chronic
     Dosage: 60 MG, 1D
     Route: 048
     Dates: start: 20230112
  5. SPIRONOLACTONE [Suspect]
     Active Substance: SPIRONOLACTONE
     Indication: Cardiac failure chronic
     Dosage: 25 MG, 1D
     Route: 048
     Dates: start: 20230413, end: 20230718
  6. Tolvaptan od [Concomitant]
     Indication: Cardiac failure chronic
     Dosage: 15 MG, 1D
     Route: 048
     Dates: start: 20230118
  7. CARVEDILOL [Concomitant]
     Active Substance: CARVEDILOL
     Indication: Chronic kidney disease
     Dosage: 2.5 MG, 1D
     Route: 048
     Dates: start: 20231203
  8. LANSOPRAZOLE [Concomitant]
     Active Substance: LANSOPRAZOLE
     Indication: Prophylaxis
     Dosage: 15 MG, 1D
     Route: 048
     Dates: start: 20231203
  9. ASPIRIN [Concomitant]
     Active Substance: ASPIRIN
     Indication: Angina pectoris
     Dosage: 100 MG, 1D
     Route: 048
     Dates: start: 20221203
  10. NICORANDIL [Concomitant]
     Active Substance: NICORANDIL
     Indication: Angina pectoris
     Dosage: 5 MG, 1D
     Route: 048
     Dates: start: 20221203
  11. FEBUXOSTAT [Concomitant]
     Active Substance: FEBUXOSTAT
     Indication: Hyperuricaemia
     Dosage: 10 MG, 1D
     Route: 048
     Dates: start: 20221203
  12. ALFAROL [Concomitant]
     Active Substance: ALFACALCIDOL
     Indication: Hyperparathyroidism secondary
     Dosage: 0.5 UG, 1D
     Route: 048
     Dates: start: 20230608

REACTIONS (5)
  - Cerebral infarction [Recovered/Resolved]
  - Hemiparaesthesia [Recovered/Resolved]
  - Lacunar infarction [Recovered/Resolved]
  - Haemoconcentration [Recovered/Resolved]
  - Dehydration [Recovered/Resolved]

NARRATIVE: CASE EVENT DATE: 20230718
